FAERS Safety Report 6652692-4 (Version None)
Quarter: 2010Q1

REPORT INFORMATION
  Report Type: 
  Country: None (occurrence: None)
  Receive Date: 20100326
  Receipt Date: 20100311
  Transmission Date: 20100710
  Serious: Yes (Hospitalization)
  Sender: FDA-Public Use
  Company Number: ES-ELI_LILLY_AND_COMPANY-ES201003003779

PATIENT
  Age: 85 Year
  Sex: Female

DRUGS (7)
  1. FORTEO [Suspect]
     Indication: OSTEOPOROSIS
     Dosage: 20 UG, UNKNOWN
     Route: 058
     Dates: start: 20100101
  2. VOLTAREN [Concomitant]
     Indication: PAIN
     Dosage: UNK, UNKNOWN
     Route: 065
  3. DIURETICS [Concomitant]
     Indication: HYPERTENSION
     Dosage: UNK, DAILY (1/D)
     Route: 065
  4. OMEPRAZOLE [Concomitant]
     Dosage: UNK, DAILY (1/D)
     Route: 065
  5. LYRICA [Concomitant]
     Indication: PAIN
     Dosage: 75 MG, EVERY 8 HRS
     Route: 065
  6. XUMADOL [Concomitant]
     Indication: PAIN
     Dosage: UNK, 3/D
     Route: 065
  7. TRAMADOL HCL [Concomitant]
     Indication: PAIN
     Dosage: UNK, UNKNOWN
     Route: 065

REACTIONS (3)
  - FALL [None]
  - FEMUR FRACTURE [None]
  - WRIST FRACTURE [None]
